FAERS Safety Report 17681099 (Version 3)
Quarter: 2020Q3

REPORT INFORMATION
  Report Type: Spontaneous
  Country: FR (occurrence: FR)
  Receive Date: 20200417
  Receipt Date: 20200827
  Transmission Date: 20201102
  Serious: Yes (Life-Threatening, Hospitalization, Other)
  Sender: FDA-Public Use
  Company Number: FR-MYLANLABS-2020M1038240

PATIENT
  Age: 52 Year
  Sex: Male

DRUGS (15)
  1. EBASTINE [Suspect]
     Active Substance: EBASTINE
     Indication: ANTIALLERGIC THERAPY
     Dosage: UNK
     Route: 065
  2. PREDNISOLONE. [Suspect]
     Active Substance: PREDNISOLONE
     Indication: DRUG REACTION WITH EOSINOPHILIA AND SYSTEMIC SYMPTOMS
  3. ACITRETIN. [Suspect]
     Active Substance: ACITRETIN
     Dosage: 60 MILLIGRAM, QD, INCREASED ON THE 4TH DAY
     Route: 065
  4. CELECOXIB. [Suspect]
     Active Substance: CELECOXIB
     Indication: RHEUMATIC DISORDER
     Dosage: UNK, FOR MORE THAN A YEAR
     Route: 065
  5. PREDNISOLONE. [Suspect]
     Active Substance: PREDNISOLONE
     Indication: STEROID THERAPY
     Dosage: UNK SYSTEMIC
  6. INFLIXIMAB [Suspect]
     Active Substance: INFLIXIMAB
     Indication: RHEUMATIC DISORDER
     Dosage: UNK
  7. METHOTREXATE. [Suspect]
     Active Substance: METHOTREXATE
     Indication: ANKYLOSING SPONDYLITIS
     Dosage: 20 MILLIGRAM, QW, SINCE 5 DAYS
     Route: 065
  8. AUGMENTIN [Suspect]
     Active Substance: AMOXICILLIN\CLAVULANATE POTASSIUM
     Indication: ODYNOPHAGIA
     Dosage: UNK
     Route: 065
  9. ACITRETIN. [Suspect]
     Active Substance: ACITRETIN
     Indication: DRUG REACTION WITH EOSINOPHILIA AND SYSTEMIC SYMPTOMS
     Dosage: 25 MILLIGRAM, QD
     Route: 065
  10. AUGMENTIN [Suspect]
     Active Substance: AMOXICILLIN\CLAVULANATE POTASSIUM
     Indication: ANTIBIOTIC THERAPY
  11. CELECOXIB. [Suspect]
     Active Substance: CELECOXIB
     Dosage: UNK A SHORT COURSE FOR OVER A YEAR
     Route: 065
  12. AUGMENTIN [Suspect]
     Active Substance: AMOXICILLIN\CLAVULANATE POTASSIUM
     Indication: EAR PAIN
  13. INFLIXIMAB [Suspect]
     Active Substance: INFLIXIMAB
     Dosage: UNK STOPPED FOR 10 WEEKS
     Route: 065
  14. METHOTREXATE. [Suspect]
     Active Substance: METHOTREXATE
     Indication: RHEUMATIC DISORDER
  15. EBASTINE [Suspect]
     Active Substance: EBASTINE
     Indication: DRUG REACTION WITH EOSINOPHILIA AND SYSTEMIC SYMPTOMS

REACTIONS (21)
  - Cardiac disorder [Recovered/Resolved]
  - Acute respiratory failure [Recovered/Resolved]
  - Drug reaction with eosinophilia and systemic symptoms [Recovered/Resolved]
  - Interstitial lung disease [Recovered/Resolved]
  - Anaemia [Recovered/Resolved]
  - Thrombocytopenia [Recovered/Resolved]
  - Ejection fraction decreased [Recovered/Resolved]
  - Drug ineffective [Unknown]
  - Bundle branch block left [Recovered/Resolved]
  - Product use in unapproved indication [Unknown]
  - Epstein-Barr virus infection reactivation [Recovered/Resolved]
  - Hepatocellular injury [Recovered/Resolved]
  - Eosinophilia [Recovered/Resolved]
  - Ventricular dysfunction [Recovered/Resolved]
  - Cardiac failure [Recovered/Resolved]
  - Inflammation [Recovered/Resolved]
  - Acute generalised exanthematous pustulosis [Recovered/Resolved]
  - Cardiopulmonary failure [Recovered/Resolved]
  - Lymphadenopathy [Recovered/Resolved]
  - Inflammatory marker increased [Recovered/Resolved]
  - Lymphadenopathy mediastinal [Recovered/Resolved]
